FAERS Safety Report 10257955 (Version 1)
Quarter: 2014Q2

REPORT INFORMATION
  Report Type: Spontaneous
  Country: US (occurrence: None)
  Receive Date: 20140623
  Receipt Date: 20140623
  Transmission Date: 20141212
  Serious: No
  Sender: FDA-Public Use
  Company Number: None

PATIENT
  Age: 65 Year
  Sex: Male
  Weight: 93 kg

DRUGS (1)
  1. DOXAZOSIN [Suspect]
     Indication: HYPERTENSION
     Route: 048
     Dates: start: 20140502, end: 20140602

REACTIONS (2)
  - Dizziness [None]
  - Hypotension [None]
